FAERS Safety Report 10700540 (Version 2)
Quarter: 2015Q1

REPORT INFORMATION
  Report Type: Spontaneous
  Country: JP (occurrence: None)
  Receive Date: 20150107
  Receipt Date: 20150220
  Transmission Date: 20150721
  Serious: Yes (Other)
  Sender: FDA-Public Use
  Company Number: 2014-JP-0111

PATIENT
  Age: 77 Year
  Sex: Female

DRUGS (4)
  1. FARESTON [Suspect]
     Active Substance: TOREMIFENE CITRATE
     Indication: BREAST CANCER
     Dosage: 120 MG PER 1 DAY, ORAL
     Route: 048
     Dates: start: 20140404, end: 20141217
  2. CONSTAN [Concomitant]
     Active Substance: ALPRAZOLAM
  3. FLUITRAN [Concomitant]
     Active Substance: TRICHLORMETHIAZIDE
  4. DOGMATYL [Concomitant]
     Active Substance: SULPIRIDE

REACTIONS (5)
  - Neovascularisation [None]
  - Thrombosis [None]
  - Oedema peripheral [None]
  - Embolism venous [None]
  - Face oedema [None]

NARRATIVE: CASE EVENT DATE: 20141217
